FAERS Safety Report 7920603-7 (Version None)
Quarter: 2011Q4

REPORT INFORMATION
  Report Type: 
  Country: None (occurrence: None)
  Receive Date: 20111117
  Receipt Date: 20111114
  Transmission Date: 20120403
  Serious: Yes (Death, Hospitalization, Other)
  Sender: FDA-Public Use
  Company Number: PHHY2010US81307

PATIENT
  Sex: Male

DRUGS (3)
  1. ANTIDEPRESSANTS [Concomitant]
  2. COUMADIN [Concomitant]
  3. GLEEVEC [Suspect]
     Indication: CHRONIC MYELOID LEUKAEMIA
     Dosage: 600 MG, DAILY
     Route: 048
     Dates: start: 20100119

REACTIONS (5)
  - SYNCOPE [None]
  - DIZZINESS [None]
  - DEPRESSION [None]
  - DEATH [None]
  - INTERNATIONAL NORMALISED RATIO INCREASED [None]
